FAERS Safety Report 9636367 (Version 2)
Quarter: 2013Q4

REPORT INFORMATION
  Report Type: Spontaneous
  Country: DK (occurrence: AU)
  Receive Date: 20131021
  Receipt Date: 20131113
  Transmission Date: 20140711
  Serious: Yes (Hospitalization)
  Sender: FDA-Public Use
  Company Number: AU-FRI-1000050324

PATIENT
  Age: 57 Year
  Sex: Female
  Weight: 85 kg

DRUGS (6)
  1. ESCITALOPRAM [Suspect]
     Indication: DEPRESSION
  2. SODIUM VALPROATE [Suspect]
     Indication: DEPRESSION
  3. EDRONAX [Suspect]
     Indication: DEPRESSION
     Dosage: 4 MG
     Route: 048
     Dates: start: 20040715, end: 20050606
  4. MODURETIC [Concomitant]
  5. NEXIUM [Concomitant]
     Indication: OESOPHAGEAL DISORDER
  6. ASPIRIN [Concomitant]
     Indication: TRANSIENT ISCHAEMIC ATTACK

REACTIONS (3)
  - Petit mal epilepsy [Recovered/Resolved]
  - Cogwheel rigidity [Recovered/Resolved]
  - Extrapyramidal disorder [Recovered/Resolved]
